FAERS Safety Report 17422618 (Version 1)
Quarter: 2020Q1

REPORT INFORMATION
  Report Type: Spontaneous
  Country: GB (occurrence: GB)
  Receive Date: 20200215
  Receipt Date: 20200215
  Transmission Date: 20200409
  Serious: Yes (Other)
  Sender: FDA-Public Use
  Company Number: GB-AUROBINDO-AUR-APL-2020-007222

PATIENT
  Sex: Female

DRUGS (1)
  1. GABAPENTIN. [Suspect]
     Active Substance: GABAPENTIN
     Indication: BACK PAIN
     Dosage: UNK
     Route: 065
     Dates: start: 20200117, end: 20200121

REACTIONS (10)
  - Paraesthesia oral [Unknown]
  - Mental impairment [Unknown]
  - Fall [Unknown]
  - Loss of consciousness [Unknown]
  - Abnormal behaviour [Unknown]
  - Nausea [Unknown]
  - Amnesia [Unknown]
  - Hypoaesthesia oral [Unknown]
  - Aphasia [Unknown]
  - Swelling face [Not Recovered/Not Resolved]

NARRATIVE: CASE EVENT DATE: 202001
